FAERS Safety Report 15598440 (Version 1)
Quarter: 2018Q4

REPORT INFORMATION
  Report Type: Spontaneous
  Country: US (occurrence: US)
  Receive Date: 20181108
  Receipt Date: 20181108
  Transmission Date: 20190205
  Serious: No
  Sender: FDA-Public Use
  Company Number: US-SA-2018SA306181

PATIENT
  Age: 52 Year
  Sex: Female

DRUGS (8)
  1. BACLOFEN. [Concomitant]
     Active Substance: BACLOFEN
  2. FISH OIL [Concomitant]
     Active Substance: FISH OIL
  3. NEURONTIN [Concomitant]
     Active Substance: GABAPENTIN
  4. ALAVERT ALLERGY [Concomitant]
     Active Substance: LORATADINE
  5. VITAMIN D [COLECALCIFEROL] [Concomitant]
  6. AUBAGIO [Suspect]
     Active Substance: TERIFLUNOMIDE
     Dosage: 1 DF, QD
     Route: 048
     Dates: start: 20160310
  7. DETROL [Concomitant]
     Active Substance: TOLTERODINE TARTRATE
  8. XANAX [Concomitant]
     Active Substance: ALPRAZOLAM

REACTIONS (1)
  - Feeling abnormal [Unknown]
